FAERS Safety Report 17809280 (Version 1)
Quarter: 2020Q2

REPORT INFORMATION
  Report Type: Spontaneous
  Country: US (occurrence: US)
  Receive Date: 20200520
  Receipt Date: 20200520
  Transmission Date: 20200714
  Serious: Yes (Hospitalization)
  Sender: FDA-Public Use
  Company Number: US-CHURCH + DWIGHT CO., INC.-2084033

PATIENT
  Age: 72 Year
  Sex: Female

DRUGS (1)
  1. VIVISCAL DIETARY SUPPLEMENT 180 CT [Suspect]
     Active Substance: DIETARY SUPPLEMENT
     Indication: HAIR GROWTH ABNORMAL
     Route: 048
     Dates: start: 20200501, end: 20200501

REACTIONS (2)
  - Abdominal distension [Recovered/Resolved]
  - Vomiting [Recovered/Resolved]

NARRATIVE: CASE EVENT DATE: 20200502
